FAERS Safety Report 22251860 (Version 1)
Quarter: 2023Q2

REPORT INFORMATION
  Report Type: Spontaneous
  Country: US (occurrence: US)
  Receive Date: 20230425
  Receipt Date: 20230425
  Transmission Date: 20230722
  Serious: No
  Sender: FDA-Public Use
  Company Number: US-SA-SAC20230424000967

PATIENT
  Age: 63 Year
  Sex: Female
  Weight: 88.45 kg

DRUGS (1)
  1. DUPIXENT [Suspect]
     Active Substance: DUPILUMAB
     Dosage: 300 MG, QOW
     Route: 058
     Dates: start: 20230222, end: 20230322

REACTIONS (4)
  - Bone pain [Recovered/Resolved]
  - Pain in extremity [Recovered/Resolved]
  - Gait inability [Recovered/Resolved]
  - Arthralgia [Recovered/Resolved]

NARRATIVE: CASE EVENT DATE: 20230101
